FAERS Safety Report 11835177 (Version 3)
Quarter: 2016Q1

REPORT INFORMATION
  Report Type: Report from Study
  Country: US (occurrence: US)
  Receive Date: 20151215
  Receipt Date: 20160317
  Transmission Date: 20160525
  Serious: No
  Sender: FDA-Public Use
  Company Number: PHHY2015US157942

PATIENT
  Age: 42 Year
  Sex: Female

DRUGS (1)
  1. GILENYA [Suspect]
     Active Substance: FINGOLIMOD HYDROCHLORIDE
     Indication: MULTIPLE SCLEROSIS
     Dosage: QD
     Route: 048

REACTIONS (5)
  - Vitamin D deficiency [Not Recovered/Not Resolved]
  - Aspartate aminotransferase increased [Unknown]
  - Alanine aminotransferase increased [Unknown]
  - Micturition urgency [Recovered/Resolved]
  - Urinary tract infection [Recovered/Resolved]

NARRATIVE: CASE EVENT DATE: 20150217
